FAERS Safety Report 21719776 (Version 1)
Quarter: 2022Q4

REPORT INFORMATION
  Report Type: Report from Study
  Country: US (occurrence: US)
  Receive Date: 20221213
  Receipt Date: 20221213
  Transmission Date: 20230112
  Serious: No
  Sender: FDA-Public Use
  Company Number: US-ACADIA PHARMACEUTICALS INC.-ACA-2022-PIM-004034

PATIENT
  Sex: Female

DRUGS (6)
  1. NUPLAZID [Suspect]
     Active Substance: PIMAVANSERIN TARTRATE
     Indication: Parkinson^s disease psychosis
     Dosage: 34 MILLIGRAM, QD
     Route: 048
     Dates: start: 20221115
  2. NUPLAZID [Suspect]
     Active Substance: PIMAVANSERIN TARTRATE
     Indication: Parkinson^s disease
  3. CARBIDOPA [Concomitant]
     Active Substance: CARBIDOPA
  4. MELOXICAM [Concomitant]
     Active Substance: MELOXICAM
  5. NEUPRO [Concomitant]
     Active Substance: ROTIGOTINE
  6. PROPRANOLOL [Concomitant]
     Active Substance: PROPRANOLOL HYDROCHLORIDE

REACTIONS (5)
  - Adverse drug reaction [Unknown]
  - Delusion [Recovering/Resolving]
  - Hallucination [Recovering/Resolving]
  - Gait disturbance [Unknown]
  - Constipation [Unknown]
